FAERS Safety Report 8819741 (Version 1)
Quarter: 2012Q4

REPORT INFORMATION
  Report Type: 
  Country: US (occurrence: US)
  Receive Date: 20121001
  Receipt Date: 20121001
  Transmission Date: 20130627
  Serious: Yes (Hospitalization, Other)
  Sender: FDA-Public Use
  Company Number: US-ROCHE-1129933

PATIENT
  Sex: Female

DRUGS (6)
  1. HERCEPTIN [Suspect]
     Indication: BREAST CANCER METASTATIC
     Route: 065
  2. XELODA [Suspect]
     Indication: BREAST CANCER METASTATIC
     Route: 065
  3. TAXOTERE [Concomitant]
  4. CISPLATIN [Concomitant]
  5. CEFTIN [Concomitant]
  6. CIPRO [Concomitant]

REACTIONS (3)
  - Disease progression [Unknown]
  - Thermal burn [Unknown]
  - Febrile neutropenia [Unknown]
